FAERS Safety Report 18209434 (Version 1)
Quarter: 2020Q3

REPORT INFORMATION
  Report Type: Report from Study
  Country: MX (occurrence: MX)
  Receive Date: 20200828
  Receipt Date: 20200828
  Transmission Date: 20201103
  Serious: Yes (Other)
  Sender: FDA-Public Use
  Company Number: MX-TOPROL-202000003

PATIENT
  Age: 76 Year
  Sex: Male
  Weight: 60 kg

DRUGS (1)
  1. SELOKEN ZOK [Suspect]
     Active Substance: METOPROLOL SUCCINATE
     Indication: TACHYCARDIA
     Dosage: HALF TABLET DAILY
     Route: 048
     Dates: start: 200701

REACTIONS (14)
  - Blood pressure increased [Unknown]
  - Cardiac disorder [Unknown]
  - Off label use [Unknown]
  - Wrong technique in product usage process [Unknown]
  - Arrhythmia [Unknown]
  - Pain in extremity [Unknown]
  - Therapeutic product effect decreased [Unknown]
  - Intervertebral disc protrusion [Unknown]
  - Product use in unapproved indication [Unknown]
  - Palpitations [Unknown]
  - Dizziness [Unknown]
  - Gait disturbance [Unknown]
  - Cataract [Unknown]
  - Balance disorder [Unknown]
